FAERS Safety Report 16137988 (Version 1)
Quarter: 2019Q1

REPORT INFORMATION
  Report Type: Spontaneous
  Country: IT (occurrence: IT)
  Receive Date: 20190330
  Receipt Date: 20190330
  Transmission Date: 20190418
  Serious: Yes (Hospitalization, Other)
  Sender: FDA-Public Use
  Company Number: IT-GLAXOSMITHKLINE-IT2019GSK053260

PATIENT
  Age: 67 Year
  Sex: Female

DRUGS (1)
  1. DICLOFENAC SODIUM. [Suspect]
     Active Substance: DICLOFENAC SODIUM
     Indication: ARTHRALGIA
     Dosage: UNK

REACTIONS (12)
  - Eyelid disorder [Unknown]
  - Scar [Recovered/Resolved]
  - Blepharitis [Recovered/Resolved]
  - Body temperature increased [Recovered/Resolved]
  - Asthenia [Recovered/Resolved]
  - Photosensitivity reaction [Recovered/Resolved]
  - Necrosis [Recovered/Resolved]
  - Surgery [Recovered/Resolved]
  - Angioedema [Recovered/Resolved]
  - Necrotising fasciitis [Recovered/Resolved]
  - Condition aggravated [Recovered/Resolved]
  - Ectropion [Recovered/Resolved]
